FAERS Safety Report 6233303-9 (Version None)
Quarter: 2009Q2

REPORT INFORMATION
  Report Type: 
  Country: None (occurrence: None)
  Receive Date: 20090615
  Receipt Date: 20090615
  Transmission Date: 20091009
  Serious: No
  Sender: FDA-Public Use
  Company Number: None

PATIENT
  Age: 75 Year
  Sex: Male

DRUGS (2)
  1. ENOXAPARIN SODIUM [Suspect]
     Indication: JUGULAR VEIN THROMBOSIS
     Dosage: 80 MG BID SQ
     Dates: start: 20090608, end: 20090610
  2. ASPIRIN [Suspect]
     Indication: CORONARY ARTERY DISEASE
     Dosage: 81 MG EVERY DAY PO
     Route: 048
     Dates: end: 20090610

REACTIONS (3)
  - BLOOD URINE PRESENT [None]
  - GASTROINTESTINAL HAEMORRHAGE [None]
  - JUGULAR VEIN THROMBOSIS [None]
